FAERS Safety Report 7026333-0 (Version None)
Quarter: 2010Q4

REPORT INFORMATION
  Report Type: 
  Country: None (occurrence: None)
  Receive Date: 20101004
  Receipt Date: 20100922
  Transmission Date: 20110411
  Serious: Yes (Death, Other)
  Sender: FDA-Public Use
  Company Number: US-PFIZER INC-2010038405

PATIENT
  Sex: Male

DRUGS (3)
  1. CHANTIX [Suspect]
     Indication: SMOKING CESSATION THERAPY
     Dosage: STARTING MONTH PACK
     Dates: start: 20070830
  2. ALBUTEROL [Concomitant]
     Indication: CHEST DISCOMFORT
     Dosage: UNK
     Dates: start: 20070830, end: 20070925
  3. PREDNISONE [Concomitant]
     Indication: CHEST DISCOMFORT
     Dosage: UNK
     Dates: start: 20070830, end: 20070910

REACTIONS (4)
  - ANXIETY [None]
  - COMPLETED SUICIDE [None]
  - DEPRESSION [None]
  - MENTAL DISORDER [None]
